FAERS Safety Report 8450568-3 (Version None)
Quarter: 2012Q2

REPORT INFORMATION
  Report Type: 
  Country: None (occurrence: None)
  Receive Date: 20120601
  Receipt Date: 20120530
  Transmission Date: 20120825
  Serious: Yes (Other)
  Sender: FDA-Public Use
  Company Number: 2012032436

PATIENT
  Sex: Female

DRUGS (1)
  1. RHOPHYLAC [Suspect]
     Indication: FOETAL-MATERNAL HAEMORRHAGE
     Dosage: 1500 U

REACTIONS (3)
  - MATERNAL EXPOSURE DURING PREGNANCY [None]
  - FOETAL-MATERNAL HAEMORRHAGE [None]
  - HAEMORRHAGE [None]
